FAERS Safety Report 6569918-8 (Version None)
Quarter: 2010Q1

REPORT INFORMATION
  Report Type: 
  Country: None (occurrence: None)
  Receive Date: 20100204
  Receipt Date: 20100126
  Transmission Date: 20100710
  Serious: Yes (Other)
  Sender: FDA-Public Use
  Company Number: US-AMGEN-QUU386001

PATIENT
  Sex: Male
  Weight: 95.3 kg

DRUGS (4)
  1. ENBREL [Suspect]
     Indication: RHEUMATOID ARTHRITIS
     Route: 058
     Dates: start: 20090806, end: 20091112
  2. AZULFIDINE [Concomitant]
  3. METHOTREXATE [Concomitant]
  4. ORENCIA [Concomitant]

REACTIONS (2)
  - HENOCH-SCHONLEIN PURPURA [None]
  - LIVER FUNCTION TEST ABNORMAL [None]
